FAERS Safety Report 19647442 (Version 1)
Quarter: 2021Q3

REPORT INFORMATION
  Report Type: Spontaneous
  Country: TW (occurrence: TW)
  Receive Date: 20210802
  Receipt Date: 20210802
  Transmission Date: 20211014
  Serious: Yes (Death, Other)
  Sender: FDA-Public Use
  Company Number: NVSC2021TW115555

PATIENT
  Age: 73 Year
  Sex: Female

DRUGS (4)
  1. DASATINIB. [Concomitant]
     Active Substance: DASATINIB
     Dosage: 140 MG, QD
     Route: 065
  2. NILOTINIB [Suspect]
     Active Substance: NILOTINIB
     Indication: CHRONIC MYELOID LEUKAEMIA
     Dosage: 600 MG, QD
     Route: 065
     Dates: start: 20191220, end: 20200723
  3. DASATINIB. [Concomitant]
     Active Substance: DASATINIB
     Indication: CHRONIC MYELOID LEUKAEMIA
     Dosage: 100 MG, QD
     Route: 065
     Dates: start: 20190823, end: 20191219
  4. PONATINIB [Concomitant]
     Active Substance: PONATINIB
     Indication: CHRONIC MYELOID LEUKAEMIA
     Dosage: 45 MG, QD
     Route: 065
     Dates: start: 20200724

REACTIONS (2)
  - Death [Fatal]
  - Blast cell crisis [Unknown]

NARRATIVE: CASE EVENT DATE: 202007
